FAERS Safety Report 9915205 (Version 1)
Quarter: 2014Q1

REPORT INFORMATION
  Report Type: Spontaneous
  Country: CA (occurrence: CA)
  Receive Date: 20140220
  Receipt Date: 20140220
  Transmission Date: 20141002
  Serious: Yes (Other)
  Sender: FDA-Public Use
  Company Number: CA-ROCHE-1351861

PATIENT
  Sex: Female

DRUGS (1)
  1. LUCENTIS [Suspect]
     Indication: MACULAR DEGENERATION
     Dosage: EVERY SIX WEEKS TO 02 MONTHS
     Route: 050
     Dates: start: 20140131

REACTIONS (9)
  - Arterial occlusive disease [Unknown]
  - Cataract [Unknown]
  - Blood pressure [Unknown]
  - Eye haemorrhage [Unknown]
  - Hyperhidrosis [Unknown]
  - Feeling hot [Unknown]
  - Movement disorder [Unknown]
  - Dizziness [Unknown]
  - Visual acuity reduced [Unknown]
